FAERS Safety Report 15155081 (Version 1)
Quarter: 2018Q3

REPORT INFORMATION
  Report Type: Spontaneous
  Country: US (occurrence: US)
  Receive Date: 20180620
  Receipt Date: 20180620
  Transmission Date: 20181010
  Serious: No
  Sender: FDA-Public Use
  Company Number: None

PATIENT
  Age: 46 Year
  Sex: Female

DRUGS (1)
  1. TALTZ [Suspect]
     Active Substance: IXEKIZUMAB
     Indication: PSORIASIS
     Dosage: ?          OTHER DOSE:80MGX2 THEN 80MG;OTHER FREQUENCY:WEEK 0 THEN WEEK 2;?
     Route: 058
     Dates: start: 20180601

REACTIONS (2)
  - Pain [None]
  - Wrong technique in product usage process [None]

NARRATIVE: CASE EVENT DATE: 20180601
